FAERS Safety Report 4342522-8 (Version None)
Quarter: 2004Q2

REPORT INFORMATION
  Report Type: 
  Country: None (occurrence: None)
  Receive Date: 20040420
  Receipt Date: 20040420
  Transmission Date: 20050107
  Serious: Yes (Life-Threatening)
  Sender: FDA-Public Use
  Company Number: None

PATIENT
  Age: 14 Year
  Sex: Female
  Weight: 54.4316 kg

DRUGS (1)
  1. EPIPEN [Suspect]

REACTIONS (4)
  - BONE DISORDER [None]
  - CREPITATIONS [None]
  - HYPOAESTHESIA [None]
  - MEDICATION ERROR [None]
